FAERS Safety Report 23711241 (Version 2)
Quarter: 2024Q2

REPORT INFORMATION
  Report Type: Report from Study
  Country: RU (occurrence: RU)
  Receive Date: 20240405
  Receipt Date: 20240501
  Transmission Date: 20240716
  Serious: Yes (Other)
  Sender: FDA-Public Use
  Company Number: RU-002147023-NVSC2024RU071789

PATIENT
  Age: 65 Year
  Sex: Female

DRUGS (8)
  1. DABRAFENIB [Suspect]
     Active Substance: DABRAFENIB
     Indication: BRAF gene mutation
     Dosage: 300 MG, QD
     Route: 048
     Dates: start: 20231108, end: 20240111
  2. DABRAFENIB [Suspect]
     Active Substance: DABRAFENIB
     Indication: Malignant melanoma
  3. TRAMETINIB [Suspect]
     Active Substance: TRAMETINIB
     Indication: BRAF gene mutation
     Dosage: 2 MG, QD
     Route: 048
     Dates: start: 20231108, end: 20240111
  4. TRAMETINIB [Suspect]
     Active Substance: TRAMETINIB
     Indication: Malignant melanoma
  5. METFORMIN [Concomitant]
     Active Substance: METFORMIN HYDROCHLORIDE
     Indication: Product used for unknown indication
     Dosage: 850 MG, QD
     Route: 065
  6. BISOPROLOL [Concomitant]
     Active Substance: BISOPROLOL\BISOPROLOL FUMARATE
     Indication: Product used for unknown indication
     Dosage: 2,5 MG, QD
     Route: 065
  7. PERINDOPRIL [Concomitant]
     Active Substance: PERINDOPRIL
     Indication: Product used for unknown indication
     Dosage: 10 MG, QD
     Route: 065
  8. TORSEMIDE [Concomitant]
     Active Substance: TORSEMIDE
     Indication: Product used for unknown indication
     Dosage: 5 MG, QD
     Route: 065

REACTIONS (1)
  - Hepatitis [Recovered/Resolved]

NARRATIVE: CASE EVENT DATE: 20240111
